FAERS Safety Report 24528059 (Version 1)
Quarter: 2024Q4

REPORT INFORMATION
  Report Type: Report from Study
  Country: ZA (occurrence: ZA)
  Receive Date: 20241021
  Receipt Date: 20241021
  Transmission Date: 20250115
  Serious: Yes (Death, Other)
  Sender: ROCHE
  Company Number: ZA-ROCHE-10000106023

PATIENT

DRUGS (8)
  1. RITUXIMAB [Suspect]
     Active Substance: RITUXIMAB
     Indication: Lupus nephritis
     Route: 065
  2. MYCOPHENOLATE MOFETIL [Suspect]
     Active Substance: MYCOPHENOLATE MOFETIL
     Indication: Lupus nephritis
     Route: 065
  3. CYCLOPHOSPHAMIDE [Suspect]
     Active Substance: CYCLOPHOSPHAMIDE
     Indication: Lupus nephritis
     Route: 065
  4. AZATHIOPRINE [Suspect]
     Active Substance: AZATHIOPRINE
     Indication: Lupus nephritis
     Route: 065
  5. METHOTREXATE [Suspect]
     Active Substance: METHOTREXATE
     Indication: Lupus nephritis
     Route: 065
  6. CYCLOSPORINE [Suspect]
     Active Substance: CYCLOSPORINE
     Indication: Lupus nephritis
     Route: 065
  7. PREDNISONE [Suspect]
     Active Substance: PREDNISONE
     Indication: Lupus nephritis
     Route: 065
  8. TACROLIMUS [Suspect]
     Active Substance: TACROLIMUS
     Indication: Lupus nephritis
     Route: 065

REACTIONS (19)
  - Pneumonia [Fatal]
  - Pulmonary tuberculosis [Unknown]
  - Pneumocystis jirovecii infection [Unknown]
  - Herpes simplex [Unknown]
  - Herpes zoster [Unknown]
  - Varicella [Unknown]
  - Urinary tract infection [Unknown]
  - Abscess [Unknown]
  - Cellulitis [Unknown]
  - Furuncle [Unknown]
  - Sepsis [Unknown]
  - Salmonellosis [Unknown]
  - Clostridium difficile colitis [Unknown]
  - Tinea infection [Unknown]
  - Candida infection [Unknown]
  - Cytopenia [Unknown]
  - Osteonecrosis [Unknown]
  - Haematuria [Unknown]
  - Premature menopause [Unknown]
